FAERS Safety Report 7512419-0 (Version None)
Quarter: 2011Q2

REPORT INFORMATION
  Report Type: 
  Country: None (occurrence: None)
  Receive Date: 20110531
  Receipt Date: 20110517
  Transmission Date: 20111010
  Serious: Yes (Other)
  Sender: FDA-Public Use
  Company Number: CA-JNJFOC-20110508425

PATIENT
  Sex: Female
  Weight: 89 kg

DRUGS (4)
  1. BENADRYL [Concomitant]
     Indication: PREMEDICATION
  2. ACETAMINOPHEN [Concomitant]
     Indication: PREMEDICATION
  3. REMICADE [Suspect]
     Indication: PRODUCT USED FOR UNKNOWN INDICATION
     Route: 042
     Dates: start: 20110415
  4. REMICADE [Suspect]
     Route: 042
     Dates: start: 20110517

REACTIONS (2)
  - LYMPHADENOPATHY [None]
  - INFUSION RELATED REACTION [None]
